FAERS Safety Report 5262385-6 (Version None)
Quarter: 2007Q1

REPORT INFORMATION
  Report Type: 
  Country: None (occurrence: None)
  Receive Date: 20070309
  Receipt Date: 20070309
  Transmission Date: 20070707
  Serious: Yes (Other)
  Sender: FDA-Public Use
  Company Number: None

PATIENT
  Sex: Male

DRUGS (1)
  1. AVASTIN [Suspect]
     Indication: CHOROIDAL NEOVASCULARISATION
     Dosage: 0.05ML INTRAOCULAR
     Route: 031
     Dates: start: 20060517, end: 20060517

REACTIONS (1)
  - CEREBROVASCULAR ACCIDENT [None]
